FAERS Safety Report 23875187 (Version 5)
Quarter: 2024Q4

REPORT INFORMATION
  Report Type: Spontaneous
  Country: US (occurrence: US)
  Receive Date: 20240520
  Receipt Date: 20241216
  Transmission Date: 20250114
  Serious: No
  Sender: CALLIDITAS THERAPEUTICS AB
  Company Number: US-Calliditas-2024CAL00730

PATIENT
  Age: 58 Year
  Sex: Male

DRUGS (16)
  1. TARPEYO [Suspect]
     Active Substance: BUDESONIDE
     Indication: IgA nephropathy
     Route: 048
     Dates: start: 20240329
  2. ALLOPURINOL [Concomitant]
     Active Substance: ALLOPURINOL
  3. AMLODIPINE [Concomitant]
     Active Substance: AMLODIPINE BESYLATE
  4. ASCORBIC ACID\VITAMIN B COMPLEX [Concomitant]
     Active Substance: ASCORBIC ACID\VITAMIN B COMPLEX
  5. CARVEDILOL [Concomitant]
     Active Substance: CARVEDILOL
  6. VITAMIN D3 [Concomitant]
     Active Substance: CHOLECALCIFEROL
  7. CYCLOSPORINE [Concomitant]
     Active Substance: CYCLOSPORINE
  8. JARDIANCE [Concomitant]
     Active Substance: EMPAGLIFLOZIN
  9. LOSARTAN [Concomitant]
     Active Substance: LOSARTAN
  10. VITAMINS [Concomitant]
     Active Substance: VITAMINS
  11. CELLCEPT [Concomitant]
     Active Substance: MYCOPHENOLATE MOFETIL
  12. OMEGA-3 FATTY ACIDS [Concomitant]
     Active Substance: OMEGA-3 FATTY ACIDS
  13. PRILOSEC [Concomitant]
     Active Substance: OMEPRAZOLE MAGNESIUM
  14. PRAVASTATIN [Concomitant]
     Active Substance: PRAVASTATIN
  15. PREDNISONE [Concomitant]
     Active Substance: PREDNISONE
  16. VIAGRA [Concomitant]
     Active Substance: SILDENAFIL CITRATE

REACTIONS (16)
  - Rash [Not Recovered/Not Resolved]
  - Weight increased [Not Recovered/Not Resolved]
  - Muscle spasms [Not Recovered/Not Resolved]
  - Acne [Unknown]
  - Myalgia [Not Recovered/Not Resolved]
  - Hair growth abnormal [Not Recovered/Not Resolved]
  - Nail growth abnormal [Not Recovered/Not Resolved]
  - Anxiety [Recovering/Resolving]
  - Depressed mood [Recovering/Resolving]
  - Dry skin [Unknown]
  - Swelling face [Unknown]
  - Fatigue [Unknown]
  - Muscle fatigue [Unknown]
  - Frustration tolerance decreased [Unknown]
  - Drug ineffective [Not Recovered/Not Resolved]
  - Thyroid disorder [Unknown]
